FAERS Safety Report 22234576 (Version 1)
Quarter: 2023Q2

REPORT INFORMATION
  Report Type: Spontaneous
  Country: US (occurrence: None)
  Receive Date: 20230420
  Receipt Date: 20230420
  Transmission Date: 20230721
  Serious: No
  Sender: FDA-Public Use
  Company Number: US-ROCHE-3217887

PATIENT
  Sex: Male

DRUGS (1)
  1. ESBRIET [Suspect]
     Active Substance: PIRFENIDONE
     Indication: Product used for unknown indication
     Dosage: ONGOING: YES?STRENGTH 267MG
     Route: 048
     Dates: start: 202210

REACTIONS (4)
  - Abdominal pain upper [Unknown]
  - Feeding disorder [Unknown]
  - Dysphagia [Unknown]
  - Speech disorder [Unknown]

NARRATIVE: CASE EVENT DATE: 20221110
